FAERS Safety Report 8962377 (Version 1)
Quarter: 2012Q4

REPORT INFORMATION
  Report Type: 
  Country: US (occurrence: None)
  Receive Date: 20121211
  Receipt Date: 20121211
  Transmission Date: 20130627
  Serious: No
  Sender: FDA-Public Use
  Company Number: None

PATIENT
  Sex: Female
  Weight: 87 kg

DRUGS (11)
  1. ZOLEDRONIC ACID (ZOLENDRONATE, ZOMETA) [Suspect]
  2. AMOXICILLIN [Concomitant]
  3. CITALOPRAM HYDROBROMIDE [Concomitant]
  4. ENBREL [Concomitant]
  5. FOLIC ACID [Concomitant]
  6. LETRAZOLE [Concomitant]
  7. MAGNESIUM [Concomitant]
  8. NITROFURANTION [Concomitant]
  9. OXYCODONE [Concomitant]
  10. SYNTHOID [Concomitant]
  11. TRIAMCINOLNE [Concomitant]

REACTIONS (1)
  - Osteonecrosis [None]
